FAERS Safety Report 7887751-1 (Version None)
Quarter: 2011Q4

REPORT INFORMATION
  Report Type: 
  Country: None (occurrence: None)
  Receive Date: 20111101
  Receipt Date: 20111021
  Transmission Date: 20120403
  Serious: Yes (Other)
  Sender: FDA-Public Use
  Company Number: 1000024889

PATIENT
  Age: 46 Year
  Sex: Female

DRUGS (1)
  1. SAVELLA [Suspect]

REACTIONS (2)
  - ANAPHYLACTIC SHOCK [None]
  - URTICARIA [None]
